FAERS Safety Report 8456136-1 (Version None)
Quarter: 2012Q2

REPORT INFORMATION
  Report Type: 
  Country: None (occurrence: None)
  Receive Date: 20120621
  Receipt Date: 20120601
  Transmission Date: 20120825
  Serious: Yes (Life-Threatening, Hospitalization)
  Sender: FDA-Public Use
  Company Number: JP-ROCHE-1070524

PATIENT
  Sex: Male
  Weight: 46 kg

DRUGS (25)
  1. PRAVASTATIN [Concomitant]
     Route: 048
     Dates: start: 20120501
  2. PREDNISOLONE [Suspect]
     Route: 042
     Dates: start: 20120514, end: 20120515
  3. ASPIRIN [Concomitant]
     Route: 048
  4. PRAVASTATIN [Concomitant]
     Indication: HYPERLIPIDAEMIA
     Route: 048
     Dates: start: 19960101, end: 20120512
  5. ALENDRONATE SODIUM [Concomitant]
     Route: 048
     Dates: start: 20120501
  6. RABEPRAZOLE SODIUM [Concomitant]
     Indication: GASTRIC ULCER
     Route: 048
     Dates: end: 20120512
  7. RABEPRAZOLE SODIUM [Concomitant]
     Route: 048
     Dates: start: 20120501
  8. FERROUS CITRATE [Concomitant]
     Indication: IRON DEFICIENCY ANAEMIA
     Route: 048
     Dates: end: 20120512
  9. RHEUMATREX [Concomitant]
     Route: 048
     Dates: start: 20120501
  10. COTRIM [Concomitant]
     Dosage: 1DF FOR 2/DAY
     Route: 048
     Dates: start: 20120501
  11. FOLIAMIN [Concomitant]
     Route: 048
     Dates: start: 20120501
  12. ALLOID G [Concomitant]
     Indication: GASTROOESOPHAGEAL REFLUX DISEASE
     Route: 048
     Dates: end: 20120512
  13. PREDNISOLONE [Suspect]
     Route: 042
     Dates: start: 20120516, end: 20120517
  14. FOLIAMIN [Concomitant]
     Indication: PROPHYLAXIS
     Route: 048
     Dates: end: 20120512
  15. ALLOID G [Concomitant]
     Route: 048
     Dates: start: 20120501
  16. RHEUMATREX [Concomitant]
     Indication: RHEUMATOID ARTHRITIS
     Route: 048
     Dates: end: 20120512
  17. SIGMART [Concomitant]
     Indication: ANGINA PECTORIS
     Route: 048
     Dates: end: 20120512
  18. SIGMART [Concomitant]
     Route: 048
     Dates: start: 20120501
  19. PROGRAF [Suspect]
     Route: 048
     Dates: start: 20120501
  20. FERROUS CITRATE [Concomitant]
     Route: 048
     Dates: start: 20120501
  21. COTRIM [Concomitant]
     Indication: ANTIFUNGAL PROPHYLAXIS
     Dosage: 1DF FOR 2/DAY
     Route: 048
     Dates: end: 20120512
  22. PROGRAF [Suspect]
     Indication: RHEUMATOID ARTHRITIS
     Dosage: DOSAGE IS UNCERTAIN.
     Route: 065
     Dates: end: 20120512
  23. ACTEMRA [Suspect]
     Indication: RHEUMATOID ARTHRITIS
     Route: 041
     Dates: start: 20100120, end: 20120511
  24. PREDNISOLONE [Suspect]
     Indication: RHEUMATOID ARTHRITIS
     Dosage: DOSAGE IS UNCERTAIN.
     Route: 065
     Dates: start: 19960101, end: 20120512
  25. ALENDRONATE SODIUM [Concomitant]
     Indication: OSTEOPOROSIS
     Route: 048
     Dates: end: 20120512

REACTIONS (3)
  - INFECTIOUS PERITONITIS [None]
  - GASTROINTESTINAL HAEMORRHAGE [None]
  - ILEAL PERFORATION [None]
